FAERS Safety Report 8827860 (Version 3)
Quarter: 2012Q4

REPORT INFORMATION
  Report Type: 
  Country: TR (occurrence: TR)
  Receive Date: 20121005
  Receipt Date: 20121023
  Transmission Date: 20130627
  Serious: Yes (Hospitalization)
  Sender: FDA-Public Use
  Company Number: TR-VERTEX PHARMACEUTICAL INC.-000000000000000442

PATIENT
  Age: 67 Year
  Sex: Female
  Weight: 76 kg

DRUGS (3)
  1. VX-950 [Suspect]
     Indication: HEPATITIS C
     Dosage: 3 df in two days
     Route: 048
     Dates: start: 20120209, end: 20120509
  2. RIBAVIRIN [Suspect]
     Indication: HEPATITIS C
     Dosage: Dosage Form: Unspecified
     Route: 065
     Dates: start: 20120209, end: 20120520
  3. PEG-INTERFERON [Suspect]
     Indication: HEPATITIS C
     Dosage: Dosage Form: Unspecified
     Route: 065
     Dates: start: 20120209, end: 20120520

REACTIONS (6)
  - Fatigue [Recovered/Resolved]
  - Condition aggravated [Unknown]
  - Liver function test abnormal [Unknown]
  - Anaemia [Recovered/Resolved]
  - Syncope [Unknown]
  - Hepatitis C [Unknown]
